FAERS Safety Report 7599526-1 (Version None)
Quarter: 2011Q3

REPORT INFORMATION
  Report Type: 
  Country: None (occurrence: None)
  Receive Date: 20110711
  Receipt Date: 20080407
  Transmission Date: 20111222
  Serious: Yes (Death, Other)
  Sender: FDA-Public Use
  Company Number: US-BAYER-200826597NA

PATIENT
  Age: 77 Year
  Sex: Male
  Weight: 98 kg

DRUGS (32)
  1. PREVACID [Concomitant]
     Indication: DYSPEPSIA
     Dosage: 30 MG, DAILY
     Route: 048
  2. ATIVAN [Concomitant]
     Dosage: 1 MG, UNK
     Route: 060
     Dates: start: 20051028
  3. CEFAZOLIN [Concomitant]
     Dosage: 2 MG, UNK
     Route: 042
     Dates: start: 20051104, end: 20051104
  4. LASIX [Concomitant]
     Dosage: 40 MG, DAILY
     Route: 048
  5. FLOMAX [Concomitant]
     Indication: DYSURIA
     Dosage: 0.4 MG DAILY
     Route: 048
  6. BENICAR [Concomitant]
     Dosage: 40 MG, BID
     Route: 048
  7. VERSED [Concomitant]
     Dosage: 2 MG, UNK
     Route: 042
     Dates: start: 20051104, end: 20051104
  8. VASOPRESSIN [Concomitant]
     Dosage: CONTINUED
     Dates: start: 20051104
  9. PAPAVERINE [Concomitant]
     Dosage: 30 MG/ML, UNK
     Route: 042
  10. ISOVUE-300 [Concomitant]
     Dosage: 24 ML, UNK
     Dates: start: 20051028
  11. EPINEPHRINE [Concomitant]
     Dosage: CONTINUED, UNK
     Dates: start: 20041104
  12. COUMADIN [Concomitant]
     Dosage: 5 MG THREE DAYS/WEEK
     Route: 048
  13. PANCURONIUM [Concomitant]
     Dosage: 10 ML, UNK
     Route: 042
     Dates: start: 20051104, end: 20051104
  14. TRASYLOL [Suspect]
     Dosage: 50 CC/HOUR X 6 HOURS
     Route: 042
     Dates: start: 20051104, end: 20051104
  15. SUFENTANIL CITRATE [Concomitant]
     Dosage: 10
     Dates: start: 20051104, end: 20051104
  16. TRASYLOL [Suspect]
     Indication: MITRAL VALVE REPAIR
     Dosage: 100 CC LOADING DOSE
     Route: 042
     Dates: start: 20051104, end: 20051104
  17. ATENOLOL [Concomitant]
     Dosage: 25 MG, UNK
     Route: 048
  18. DIGOXIN [Concomitant]
     Dosage: 0.25 MG/24HR, UNK
     Route: 048
  19. ZINACEF [Concomitant]
     Dosage: 1.5 G, UNK
     Route: 042
     Dates: start: 20051104
  20. PLAVIX [Concomitant]
     Dosage: 75 MG, UNK
     Route: 048
     Dates: start: 20051026
  21. VERSED [Concomitant]
     Dosage: 1 MG, UNK
     Route: 042
     Dates: start: 20051028
  22. SUBLIMAZE PRESERVATIVE FREE [Concomitant]
     Dosage: 1 ML, UNK
     Route: 042
     Dates: start: 20051028
  23. BENADRYL [Concomitant]
     Dosage: 50 MG, UNK
     Route: 048
     Dates: start: 20051028
  24. NOREPINEPHRINE BITARTRATE [Concomitant]
     Dosage: CONTINUED, UNK
     Dates: start: 20051104
  25. ISOVUE-300 [Concomitant]
     Indication: CATHETERISATION CARDIAC
     Dosage: 100 ML, UNK
     Dates: start: 20051012
  26. ISOVUE-370 [Concomitant]
     Indication: CATHETERISATION CARDIAC
     Dosage: 115 ML, UNK
     Dates: start: 20051028
  27. TRASYLOL [Suspect]
     Indication: CORONARY ARTERY BYPASS
     Dosage: 1 ML, ONCE, INITIAL TEST DOSE
     Route: 042
     Dates: start: 20051104, end: 20051104
  28. ACETYLSALICYLIC ACID SRT [Concomitant]
     Dosage: 81 MG, UNK
     Route: 048
     Dates: start: 20051028
  29. FENTANYL [Concomitant]
     Dosage: 100MCG
     Route: 042
     Dates: start: 20051104, end: 20051104
  30. ETOMIDATE [Concomitant]
     Dosage: 30 UNK, UNK
     Route: 042
     Dates: start: 20051104, end: 20051104
  31. MILRINONE [Concomitant]
     Dosage: 15UNK
     Route: 042
     Dates: start: 20051104, end: 20051104
  32. HEPARIN [Concomitant]
     Dosage: UNK
     Dates: start: 20051104, end: 20051104

REACTIONS (10)
  - DEATH [None]
  - ANXIETY [None]
  - RENAL FAILURE [None]
  - UNEVALUABLE EVENT [None]
  - INJURY [None]
  - FEAR [None]
  - ADVERSE EVENT [None]
  - DEPRESSION [None]
  - PAIN [None]
  - ANHEDONIA [None]
